FAERS Safety Report 9348102 (Version 1)
Quarter: 2013Q2

REPORT INFORMATION
  Report Type: Spontaneous
  Country: US (occurrence: US)
  Receive Date: 20130614
  Receipt Date: 20130614
  Transmission Date: 20140414
  Serious: Yes (Other)
  Sender: FDA-Public Use
  Company Number: US-JNJFOC-20130604554

PATIENT
  Age: 7 Year
  Sex: Female
  Weight: 27.22 kg

DRUGS (4)
  1. BENADRYL TOPICAL CHILDRENS GEL [Suspect]
     Indication: LACERATION
     Dosage: FINGER TIP, LESS THAN A DIME
     Route: 061
     Dates: start: 20130605, end: 20130605
  2. MULTIVITAMINS [Concomitant]
     Indication: VITAMIN SUPPLEMENTATION
     Route: 065
     Dates: start: 2010
  3. VITAMIN C [Concomitant]
     Indication: VITAMIN SUPPLEMENTATION
     Route: 065
     Dates: start: 2010
  4. CALCIUM [Concomitant]
     Indication: MINERAL SUPPLEMENTATION
     Route: 065
     Dates: start: 2010

REACTIONS (1)
  - Loss of consciousness [Recovered/Resolved]
